FAERS Safety Report 21783553 (Version 1)
Quarter: 2022Q4

REPORT INFORMATION
  Report Type: Spontaneous
  Country: US (occurrence: US)
  Receive Date: 20221227
  Receipt Date: 20221227
  Transmission Date: 20230112
  Serious: Yes (Hospitalization)
  Sender: FDA-Public Use
  Company Number: US-SA-SAC20221227000226

PATIENT
  Age: 14 Year
  Sex: Male

DRUGS (11)
  1. ELOCTATE [Suspect]
     Active Substance: EFMOROCTOCOG ALFA
     Indication: Factor VIII deficiency
     Dosage: 2000 UNITS (1800-2200) SLOW IV PUSH DAILY FOR 10 DAYS
     Route: 042
     Dates: start: 202211
  2. ELOCTATE [Suspect]
     Active Substance: EFMOROCTOCOG ALFA
     Indication: Factor VIII deficiency
     Dosage: 2000 UNITS (1800-2200) SLOW IV PUSH DAILY FOR 10 DAYS
     Route: 042
     Dates: start: 202211
  3. ELOCTATE [Suspect]
     Active Substance: EFMOROCTOCOG ALFA
     Dosage: 4000 UNITS (3600-4400) PRE-OP
     Route: 042
     Dates: start: 202211
  4. ELOCTATE [Suspect]
     Active Substance: EFMOROCTOCOG ALFA
     Dosage: 4000 UNITS (3600-4400) PRE-OP
     Route: 042
     Dates: start: 202211
  5. ELOCTATE [Suspect]
     Active Substance: EFMOROCTOCOG ALFA
     Dosage: UNK UNK, QD
     Route: 042
     Dates: start: 202211
  6. ELOCTATE [Suspect]
     Active Substance: EFMOROCTOCOG ALFA
     Dosage: UNK UNK, QD
     Route: 042
     Dates: start: 202211
  7. ELOCTATE [Suspect]
     Active Substance: EFMOROCTOCOG ALFA
     Dosage: 2000 U FOR MINOR BLEEDS
     Route: 042
     Dates: start: 202211
  8. ELOCTATE [Suspect]
     Active Substance: EFMOROCTOCOG ALFA
     Dosage: 2000 U FOR MINOR BLEEDS
     Route: 042
     Dates: start: 202211
  9. ELOCTATE [Suspect]
     Active Substance: EFMOROCTOCOG ALFA
     Dosage: 4000 U AS NEEDED FOR MAJOR BLEEDS
     Route: 042
     Dates: start: 202211
  10. ELOCTATE [Suspect]
     Active Substance: EFMOROCTOCOG ALFA
     Dosage: 4000 U AS NEEDED FOR MAJOR BLEEDS
     Route: 042
     Dates: start: 202211
  11. HEMLIBRA [Concomitant]
     Active Substance: EMICIZUMAB-KXWH

REACTIONS (1)
  - Central venous catheter removal [Unknown]

NARRATIVE: CASE EVENT DATE: 20220101
